FAERS Safety Report 8048374-7 (Version None)
Quarter: 2012Q1

REPORT INFORMATION
  Report Type: 
  Country: None (occurrence: None)
  Receive Date: 20120117
  Receipt Date: 20120111
  Transmission Date: 20120608
  Serious: No
  Sender: FDA-Public Use
  Company Number: US-PFIZER INC-2012008758

PATIENT
  Sex: Female

DRUGS (4)
  1. CYMBALTA [Concomitant]
     Dosage: UNK
  2. LYRICA [Suspect]
     Indication: PAIN
     Dosage: 100 MG, 2X/DAY
     Route: 048
  3. PERCOCET [Concomitant]
     Dosage: UNK
  4. NEURONTIN [Suspect]
     Indication: PAIN
     Dosage: 800 MG, 3X/DAY

REACTIONS (2)
  - PAIN IN EXTREMITY [None]
  - PAIN [None]
